FAERS Safety Report 21894610 (Version 3)
Quarter: 2023Q2

REPORT INFORMATION
  Report Type: Spontaneous
  Country: ES (occurrence: ES)
  Receive Date: 20230122
  Receipt Date: 20230504
  Transmission Date: 20230721
  Serious: Yes (Death, Other)
  Sender: FDA-Public Use
  Company Number: ES-JNJFOC-20230138074

PATIENT
  Age: 58 Year
  Sex: Male
  Weight: 113 kg

DRUGS (7)
  1. STELARA [Suspect]
     Active Substance: USTEKINUMAB
     Indication: Product used for unknown indication
     Route: 058
     Dates: start: 20160303, end: 20211107
  2. ATROVENT [Concomitant]
     Active Substance: IPRATROPIUM BROMIDE
     Dosage: 2 PRESSES/2 HOURS
     Dates: start: 20210823
  3. VALPROATE SODIUM [Concomitant]
     Active Substance: VALPROATE SODIUM
     Dates: start: 20181205
  4. VALPROIC ACID [Concomitant]
     Active Substance: VALPROIC ACID
     Dates: start: 20200306
  5. OLANZAPINE [Concomitant]
     Active Substance: OLANZAPINE
     Dates: start: 20200306
  6. ESCITALOPRAM [Concomitant]
     Active Substance: ESCITALOPRAM OXALATE
     Dates: start: 20200306
  7. NOCTAMID-1 [Concomitant]
     Dates: start: 20210329

REACTIONS (2)
  - Death [Fatal]
  - Bipolar disorder [Unknown]
